FAERS Safety Report 14944381 (Version 1)
Quarter: 2018Q2

REPORT INFORMATION
  Report Type: Report from Study
  Country: US (occurrence: US)
  Receive Date: 20180528
  Receipt Date: 20180528
  Transmission Date: 20180711
  Serious: Yes (Death, Other)
  Sender: FDA-Public Use
  Company Number: PHEH2018US019667

PATIENT
  Sex: Male

DRUGS (1)
  1. ENTRESTO [Suspect]
     Active Substance: SACUBITRIL\VALSARTAN
     Indication: CARDIAC FAILURE CONGESTIVE
     Dosage: 97.103 MG, BID
     Route: 048
     Dates: start: 20160613

REACTIONS (4)
  - Pneumonia [Unknown]
  - Idiopathic pulmonary fibrosis [Fatal]
  - Pyrexia [Unknown]
  - Malaise [Unknown]
